FAERS Safety Report 8374405-0 (Version None)
Quarter: 2012Q2

REPORT INFORMATION
  Report Type: 
  Country: None (occurrence: None)
  Receive Date: 20120521
  Receipt Date: 20120515
  Transmission Date: 20120825
  Serious: Yes (Hospitalization)
  Sender: FDA-Public Use
  Company Number: US-BAYER-2012-023043

PATIENT
  Age: 34 Year
  Sex: Female
  Weight: 96.145 kg

DRUGS (5)
  1. YAZ [Suspect]
     Dosage: UNK
     Dates: start: 20080101, end: 20090101
  2. DROSPIRENONE AND ETHINYL ESTRADIOL [Suspect]
     Indication: CONTRACEPTION
     Dosage: UNK
     Dates: start: 20080701, end: 20090201
  3. BEANO [Concomitant]
     Dosage: UNK UNK, QD
     Route: 048
     Dates: start: 20100226
  4. YASMIN [Suspect]
     Indication: CONTRACEPTION
     Dosage: UNK
     Dates: start: 20080601, end: 20090101
  5. ZESTORETIC [Concomitant]
     Dosage: 10MG-12.5MG DAILY
     Route: 048
     Dates: start: 20100226

REACTIONS (8)
  - DEPRESSION [None]
  - FEAR OF DEATH [None]
  - EMOTIONAL DISTRESS [None]
  - GALLBLADDER DISORDER [None]
  - ABDOMINAL PAIN UPPER [None]
  - CHOLECYSTITIS [None]
  - INJURY [None]
  - NERVOUSNESS [None]
